FAERS Safety Report 23042686 (Version 1)
Quarter: 2023Q4

REPORT INFORMATION
  Report Type: Other
  Country: AU (occurrence: AU)
  Receive Date: 20231009
  Receipt Date: 20231009
  Transmission Date: 20240110
  Serious: Yes (Hospitalization)
  Sender: FDA-Public Use
  Company Number: AU-DEXPHARM-20232434

PATIENT
  Age: 79 Year
  Sex: Male

DRUGS (4)
  1. DEXAMETHASONE [Suspect]
     Active Substance: DEXAMETHASONE
  2. LENALIDOMIDE [Concomitant]
     Active Substance: LENALIDOMIDE
  3. BORTEZOMIB [Concomitant]
     Active Substance: BORTEZOMIB
  4. ZOLEDRONIC ACID [Concomitant]
     Active Substance: ZOLEDRONIC ACID

REACTIONS (1)
  - Hypercalcaemia [Recovered/Resolved]
